FAERS Safety Report 9539071 (Version 2)
Quarter: 2013Q4

REPORT INFORMATION
  Report Type: Spontaneous
  Country: US (occurrence: US)
  Receive Date: 20130920
  Receipt Date: 20131120
  Transmission Date: 20140711
  Serious: No
  Sender: FDA-Public Use
  Company Number: US-PFIZER INC-2013271350

PATIENT
  Age: 50 Year
  Sex: Male
  Weight: 86.17 kg

DRUGS (4)
  1. LYRICA [Suspect]
     Indication: MYALGIA
     Dosage: 225 MG (3 X 75MG) DAILY
     Dates: start: 20130913
  2. LYRICA [Suspect]
     Indication: MUSCLE SPASMS
  3. VASOPRESSIN (BIOMARKER) [Concomitant]
     Dosage: UNK
  4. FLOMAX [Concomitant]
     Dosage: UNK

REACTIONS (3)
  - Off label use [Unknown]
  - Drug ineffective for unapproved indication [Unknown]
  - Malaise [Unknown]
